FAERS Safety Report 10758534 (Version 1)
Quarter: 2015Q1

REPORT INFORMATION
  Report Type: Spontaneous
  Country: US (occurrence: None)
  Receive Date: 20150202
  Receipt Date: 20150202
  Transmission Date: 20150721
  Serious: Yes (Hospitalization)
  Sender: FDA-Public Use
  Company Number: None

PATIENT
  Age: 65 Year
  Sex: Male
  Weight: 95.6 kg

DRUGS (7)
  1. BENICAR [Concomitant]
     Active Substance: OLMESARTAN MEDOXOMIL
  2. FLUTICASONE [Concomitant]
     Active Substance: FLUTICASONE\FLUTICASONE PROPIONATE
  3. PREVACID [Concomitant]
     Active Substance: LANSOPRAZOLE
  4. COQ10 [Concomitant]
     Active Substance: UBIDECARENONE
  5. PLAVIX [Suspect]
     Active Substance: CLOPIDOGREL BISULFATE
     Indication: STENT PLACEMENT
     Dosage: CHRONIC
     Route: 048
  6. ASA [Suspect]
     Active Substance: ASPIRIN
     Indication: STENT PLACEMENT
     Dosage: CHRONIC
     Route: 048
  7. METOPROLOL SUCCINATE. [Concomitant]
     Active Substance: METOPROLOL SUCCINATE

REACTIONS (3)
  - Condition aggravated [None]
  - Diverticulum intestinal [None]
  - Lower gastrointestinal haemorrhage [None]

NARRATIVE: CASE EVENT DATE: 20140916
